FAERS Safety Report 5663042-4 (Version None)
Quarter: 2008Q1

REPORT INFORMATION
  Report Type: 
  Country: None (occurrence: None)
  Receive Date: 20080313
  Receipt Date: 20080305
  Transmission Date: 20080703
  Serious: Yes (Other)
  Sender: FDA-Public Use
  Company Number: JP-JNJFOC-20080206192

PATIENT
  Age: 56 Year
  Sex: Female

DRUGS (10)
  1. DUROTEP [Suspect]
     Route: 062
  2. DUROTEP [Suspect]
     Indication: PAIN
     Route: 062
  3. OXYCODONE HCL [Suspect]
     Route: 065
  4. OXYCODONE HCL [Suspect]
     Indication: PAIN
     Route: 065
  5. MORPHINE HCL ELIXIR [Concomitant]
     Indication: PAIN
     Route: 065
  6. MORPHINE HCL ELIXIR [Concomitant]
     Route: 042
  7. MORPHINE HCL ELIXIR [Concomitant]
     Route: 042
  8. MORPHINE HCL ELIXIR [Concomitant]
     Route: 042
  9. MORPHINE HCL ELIXIR [Concomitant]
     Route: 042
  10. MORPHINE HCL ELIXIR [Concomitant]
     Route: 042

REACTIONS (1)
  - MYOCLONUS [None]
